FAERS Safety Report 20606290 (Version 1)
Quarter: 2022Q1

REPORT INFORMATION
  Report Type: Report from Study
  Country: CN (occurrence: CN)
  Receive Date: 20220317
  Receipt Date: 20220317
  Transmission Date: 20220423
  Serious: Yes (Other)
  Sender: FDA-Public Use
  Company Number: CN-TAKEDA-2022TJP030654

PATIENT
  Age: 30 Year
  Sex: Male

DRUGS (2)
  1. COLCHICINE [Suspect]
     Active Substance: COLCHICINE
     Indication: Myelosuppression
     Dosage: UNK
     Route: 065
  2. COLCHICINE [Suspect]
     Active Substance: COLCHICINE
     Indication: Cytogenetic abnormality

REACTIONS (4)
  - Disseminated intravascular coagulation [Unknown]
  - Hyperplasia [Unknown]
  - Myelosuppression [Unknown]
  - Toxicity to various agents [Unknown]
